FAERS Safety Report 13702105 (Version 1)
Quarter: 2017Q2

REPORT INFORMATION
  Report Type: Spontaneous
  Country: US (occurrence: US)
  Receive Date: 20170629
  Receipt Date: 20170629
  Transmission Date: 20170830
  Serious: No
  Sender: FDA-Public Use
  Company Number: US-JNJFOC-20170324973

PATIENT
  Age: 38 Year
  Sex: Male
  Weight: 86.18 kg

DRUGS (2)
  1. VISTARIL [Concomitant]
     Active Substance: HYDROXYZINE PAMOATE
     Indication: SLEEP DISORDER THERAPY
     Route: 065
  2. NIZORAL [Suspect]
     Active Substance: KETOCONAZOLE
     Indication: SEBORRHOEIC DERMATITIS
     Dosage: 1 TEASPOON TO 1 TABLESPOON 2-3 TIMES PER WEEK
     Route: 061

REACTIONS (1)
  - Dry skin [Not Recovered/Not Resolved]
